FAERS Safety Report 5007241-3 (Version None)
Quarter: 2006Q1

REPORT INFORMATION
  Report Type: 
  Country: None (occurrence: None)
  Receive Date: 20060320
  Receipt Date: 20050307
  Transmission Date: 20060701
  Serious: No
  Sender: FDA-Public Use
  Company Number: 2005-03-0846

PATIENT
  Sex: Male

DRUGS (1)
  1. PEG-INTRON [Suspect]
     Indication: HEPATITIS

REACTIONS (4)
  - ALOPECIA [None]
  - ANXIETY [None]
  - SEXUAL DYSFUNCTION [None]
  - THYROID DISORDER [None]
